FAERS Safety Report 17249569 (Version 3)
Quarter: 2020Q1

REPORT INFORMATION
  Report Type: Spontaneous
  Country: GB (occurrence: GB)
  Receive Date: 20200108
  Receipt Date: 20200208
  Transmission Date: 20200409
  Serious: Yes (Other)
  Sender: FDA-Public Use
  Company Number: GB-ABBVIE-20K-167-3224415-00

PATIENT
  Age: 4 Month
  Sex: Female
  Weight: 4.3 kg

DRUGS (6)
  1. SYNAGIS [Suspect]
     Active Substance: PALIVIZUMAB
     Route: 030
     Dates: start: 20191101, end: 20191105
  2. OMEPRAZOLE. [Concomitant]
     Active Substance: OMEPRAZOLE
     Indication: PRODUCT USED FOR UNKNOWN INDICATION
     Dosage: LIQUID BY NG ROUTE
  3. SYNAGIS [Suspect]
     Active Substance: PALIVIZUMAB
     Indication: PRODUCT USED FOR UNKNOWN INDICATION
     Dosage: FIRST SEASON
     Route: 030
     Dates: start: 20191003, end: 20200103
  4. GAVISCON [Concomitant]
     Active Substance: ALUMINUM HYDROXIDE\MAGNESIUM CARBONATE
     Indication: PRODUCT USED FOR UNKNOWN INDICATION
     Dosage: POWDER BY NG ROUTE??HALF A DUEL SACHET TO 100MLS
  5. SYNAGIS [Suspect]
     Active Substance: PALIVIZUMAB
     Route: 030
     Dates: start: 20200103
  6. ABIDEC [Concomitant]
     Indication: PRODUCT USED FOR UNKNOWN INDICATION
     Dosage: LIQUID BY NG ROUTE

REACTIONS (1)
  - Respiratory syncytial virus bronchiolitis [Recovered/Resolved]

NARRATIVE: CASE EVENT DATE: 20191101
